FAERS Safety Report 9916998 (Version 1)
Quarter: 2014Q1

REPORT INFORMATION
  Report Type: Report from Study
  Country: ES (occurrence: ES)
  Receive Date: 20140221
  Receipt Date: 20140221
  Transmission Date: 20141002
  Serious: Yes (Hospitalization)
  Sender: FDA-Public Use
  Company Number: ES-B.I. PHARMACEUTICALS,INC./RIDGEFIELD-2014-BI-06983ES

PATIENT
  Age: 54 Year
  Sex: Male

DRUGS (2)
  1. BIBW 2992 [Suspect]
     Indication: NON-SMALL CELL LUNG CANCER
     Dosage: 40 MG
     Route: 048
     Dates: start: 20130501
  2. BIBW 2992 [Suspect]
     Dosage: 30 MG
     Route: 048
     Dates: start: 20130913, end: 20140125

REACTIONS (2)
  - Diarrhoea [Recovered/Resolved]
  - Mucosal inflammation [Recovered/Resolved]
